FAERS Safety Report 24550316 (Version 2)
Quarter: 2024Q4

REPORT INFORMATION
  Report Type: Report from Study
  Country: US (occurrence: US)
  Receive Date: 20241025
  Receipt Date: 20241030
  Transmission Date: 20250114
  Serious: Yes (Hospitalization, Other)
  Sender: SUNOVION
  Company Number: US-SUMITOMO PHARMA SWITZERLAND GMBH-2024SPA002186

PATIENT

DRUGS (4)
  1. ORGOVYX [Suspect]
     Active Substance: RELUGOLIX
     Indication: Prostate cancer
     Dosage: 120 MG, QD
     Route: 048
     Dates: start: 20240802
  2. ERLEADA [Suspect]
     Active Substance: APALUTAMIDE
     Dosage: UNK
     Route: 065
  3. OZEMPIC [Concomitant]
     Active Substance: SEMAGLUTIDE
  4. MOUNJARO [Concomitant]
     Active Substance: TIRZEPATIDE
     Dosage: 12.5 MG, QW
     Route: 065

REACTIONS (6)
  - Pneumonia [Unknown]
  - Blood glucose increased [Unknown]
  - Urticaria [Unknown]
  - Hot flush [Not Recovered/Not Resolved]
  - Incorrect dose administered [Unknown]
  - Inappropriate schedule of product administration [Unknown]
